FAERS Safety Report 16045417 (Version 1)
Quarter: 2019Q1

REPORT INFORMATION
  Report Type: Spontaneous
  Country: US (occurrence: US)
  Receive Date: 20190307
  Receipt Date: 20190307
  Transmission Date: 20190418
  Serious: No
  Sender: FDA-Public Use
  Company Number: US-ASTRAZENECA-2019SE34571

PATIENT
  Age: 68 Year
  Sex: Male
  Weight: 99.3 kg

DRUGS (6)
  1. SPIRIVA [Concomitant]
     Active Substance: TIOTROPIUM BROMIDE MONOHYDRATE
     Indication: CHRONIC OBSTRUCTIVE PULMONARY DISEASE
     Dosage: 2.5 UG, TWO TIMES A DAY (1 PUMP MORNING AND 1 PUMP EVENING)
     Route: 055
  2. METOPROLOL SUCCINATE. [Suspect]
     Active Substance: METOPROLOL SUCCINATE
     Indication: ANEURYSM
     Route: 048
  3. WARFARIN [Concomitant]
     Active Substance: WARFARIN
     Indication: COAGULOPATHY
     Dosage: 10 MG ON M W F AND 7 MG ON THE OTHER 4 DAYS
     Route: 048
     Dates: start: 2008
  4. SYMBICORT [Suspect]
     Active Substance: BUDESONIDE\FORMOTEROL FUMARATE DIHYDRATE
     Indication: CHRONIC OBSTRUCTIVE PULMONARY DISEASE
     Dosage: 160/4.5 UG, TWO PUFFS, TWO TIMES A DAY
     Route: 055
     Dates: start: 201805
  5. TAMSULOSIN HYDROCHLORIDE. [Concomitant]
     Active Substance: TAMSULOSIN HYDROCHLORIDE
     Indication: PROSTATE TENDERNESS
     Dosage: 0.4 MG DAILY CONSISTING OF TWO 0.2 MG CAPSULE AT ONCE
     Route: 048
  6. METOPROLOL SUCCINATE. [Suspect]
     Active Substance: METOPROLOL SUCCINATE
     Indication: BLOOD PRESSURE ABNORMAL
     Route: 048

REACTIONS (5)
  - Blood cholesterol increased [Unknown]
  - Chronic obstructive pulmonary disease [Unknown]
  - Device issue [Unknown]
  - Off label use [Unknown]
  - Wrong technique in device usage process [Unknown]

NARRATIVE: CASE EVENT DATE: 2018
